FAERS Safety Report 5726435-2 (Version None)
Quarter: 2008Q2

REPORT INFORMATION
  Report Type: 
  Country: None (occurrence: None)
  Receive Date: 20080502
  Receipt Date: 20080430
  Transmission Date: 20081010
  Serious: Yes (Other)
  Sender: FDA-Public Use
  Company Number: B0479355A

PATIENT
  Age: 26 Year
  Sex: Female
  Weight: 50 kg

DRUGS (3)
  1. ZYBAN [Suspect]
     Route: 048
     Dates: start: 20070101, end: 20070208
  2. YASMIN [Suspect]
     Indication: CONTRACEPTION
     Route: 065
     Dates: start: 20050401
  3. ALRIN [Suspect]
     Indication: DRUG USE FOR UNKNOWN INDICATION

REACTIONS (5)
  - DRUG INTERACTION [None]
  - GESTATIONAL DIABETES [None]
  - HAEMORRHAGE [None]
  - PREGNANCY [None]
  - UNINTENDED PREGNANCY [None]
